FAERS Safety Report 22148249 (Version 1)
Quarter: 2023Q1

REPORT INFORMATION
  Report Type: Spontaneous
  Country: US (occurrence: None)
  Receive Date: 20230328
  Receipt Date: 20230328
  Transmission Date: 20230417
  Serious: No
  Sender: FDA-Public Use
  Company Number: None

PATIENT
  Age: 33 Year
  Sex: Female

DRUGS (1)
  1. TALTZ [Suspect]
     Active Substance: IXEKIZUMAB
     Dosage: FREQUENCY : MONTHLY;?
     Route: 058
     Dates: start: 202205

REACTIONS (2)
  - Gallbladder operation [None]
  - Intentional dose omission [None]
